FAERS Safety Report 6937758-3 (Version None)
Quarter: 2010Q3

REPORT INFORMATION
  Report Type: 
  Country: None (occurrence: None)
  Receive Date: 20100820
  Receipt Date: 20100820
  Transmission Date: 20110219
  Serious: Yes (Hospitalization)
  Sender: FDA-Public Use
  Company Number: None

PATIENT
  Age: 67 Year
  Sex: Female
  Weight: 66.4 kg

DRUGS (15)
  1. IFOSFAMIDE [Suspect]
     Indication: BURKITT'S LYMPHOMA
     Dosage: 3320MG (200MG/M2) DAILY OVER 2 HOURS INTRAVENOUS
     Route: 042
     Dates: start: 20100715, end: 20100718
  2. RITUXIMAB [Concomitant]
  3. VINORELBINE [Concomitant]
  4. GEMCITABINE [Concomitant]
  5. PREDNISONE [Concomitant]
  6. MESNA [Concomitant]
  7. LORAZEPAM [Concomitant]
  8. PROCHLORPERAZINE [Concomitant]
  9. VANCOMYCIN [Concomitant]
  10. BACTRIM DS [Concomitant]
  11. SODIUM BICARBONATE [Concomitant]
  12. PREMPRO [Concomitant]
  13. MAVIK [Concomitant]
  14. LEVOTHYROXINE [Concomitant]
  15. NEXIUM [Concomitant]

REACTIONS (1)
  - TOXIC ENCEPHALOPATHY [None]
